FAERS Safety Report 11102196 (Version 1)
Quarter: 2015Q2

REPORT INFORMATION
  Report Type: Spontaneous
  Country: US (occurrence: US)
  Receive Date: 20150511
  Receipt Date: 20150511
  Transmission Date: 20150821
  Serious: Yes (Other)
  Sender: FDA-Public Use
  Company Number: US-ROCHE-1573899

PATIENT
  Sex: Female

DRUGS (8)
  1. HYDROCHLOROTHIAZIDE. [Concomitant]
     Active Substance: HYDROCHLOROTHIAZIDE
     Route: 065
  2. REVATIO [Concomitant]
     Active Substance: SILDENAFIL CITRATE
     Indication: PULMONARY HYPERTENSION
     Route: 065
  3. CELLCEPT [Concomitant]
     Active Substance: MYCOPHENOLATE MOFETIL\MYCOPHENOLATE MOFETIL HYDROCHLORIDE
     Route: 065
  4. TYVASO [Concomitant]
     Active Substance: TREPROSTINIL
     Dosage: 3-4 INHALES
     Route: 065
  5. NORVASC [Suspect]
     Active Substance: AMLODIPINE BESYLATE
     Indication: PULMONARY HYPERTENSION
     Route: 048
     Dates: start: 20130516, end: 20130610
  6. VALIUM [Suspect]
     Active Substance: DIAZEPAM
     Indication: PRODUCT USED FOR UNKNOWN INDICATION
     Route: 065
  7. LEVAQUIN [Suspect]
     Active Substance: LEVOFLOXACIN
     Indication: PRODUCT USED FOR UNKNOWN INDICATION
     Route: 065
  8. NORVASC [Suspect]
     Active Substance: AMLODIPINE BESYLATE
     Indication: RAYNAUD^S PHENOMENON

REACTIONS (3)
  - Drug hypersensitivity [Unknown]
  - Weight increased [Unknown]
  - Fluid retention [Unknown]
